FAERS Safety Report 16182053 (Version 1)
Quarter: 2019Q2

REPORT INFORMATION
  Report Type: Spontaneous
  Country: US (occurrence: US)
  Receive Date: 20190410
  Receipt Date: 20190410
  Transmission Date: 20190711
  Serious: Yes (Hospitalization)
  Sender: FDA-Public Use
  Company Number: US-ALLERGAN-1909754US

PATIENT
  Sex: Male

DRUGS (8)
  1. ATIVAN [Concomitant]
     Active Substance: LORAZEPAM
     Dosage: 1 MG
     Route: 048
  2. LACTULOSE. [Concomitant]
     Active Substance: LACTULOSE
     Indication: LIVER DISORDER
     Dosage: 2 DF, QD
     Route: 048
  3. VRAYLAR [Suspect]
     Active Substance: CARIPRAZINE
     Indication: SCHIZOAFFECTIVE DISORDER
     Dosage: 3 MG, QHS
     Route: 048
  4. VRAYLAR [Suspect]
     Active Substance: CARIPRAZINE
     Indication: PSYCHOTIC DISORDER
     Dosage: 1.5 MG, QHS
     Route: 048
     Dates: start: 20190312
  5. KEPPRA [Concomitant]
     Active Substance: LEVETIRACETAM
     Indication: SCHIZOAFFECTIVE DISORDER
     Dosage: 750 MG
     Route: 048
  6. KEPPRA [Concomitant]
     Active Substance: LEVETIRACETAM
     Indication: MANIA
  7. CLOZARIL [Concomitant]
     Active Substance: CLOZAPINE
     Indication: SCHIZOPHRENIA
     Dosage: 100 MG, QD
     Route: 048
     Dates: end: 201903
  8. GEODON [Concomitant]
     Active Substance: ZIPRASIDONE HYDROCHLORIDE\ZIPRASIDONE MESYLATE
     Route: 048

REACTIONS (13)
  - Hypomania [Not Recovered/Not Resolved]
  - Affective disorder [Not Recovered/Not Resolved]
  - Body temperature decreased [Not Recovered/Not Resolved]
  - Heart rate decreased [Not Recovered/Not Resolved]
  - Off label use [Unknown]
  - Psychotic disorder [Unknown]
  - Malaise [Unknown]
  - Euphoric mood [Not Recovered/Not Resolved]
  - Depression [Not Recovered/Not Resolved]
  - Mania [Unknown]
  - Insomnia [Not Recovered/Not Resolved]
  - Paranoia [Not Recovered/Not Resolved]
  - Drug ineffective [Unknown]

NARRATIVE: CASE EVENT DATE: 20190312
